FAERS Safety Report 5317065-5 (Version None)
Quarter: 2007Q2

REPORT INFORMATION
  Report Type: 
  Country: None (occurrence: None)
  Receive Date: 20070504
  Receipt Date: 20070427
  Transmission Date: 20071010
  Serious: Yes (Other)
  Sender: FDA-Public Use
  Company Number: GB-ROCHE-487893

PATIENT
  Age: 76 Year
  Sex: Female
  Weight: 55 kg

DRUGS (3)
  1. BONIVA [Suspect]
     Indication: OSTEOPOROSIS
     Route: 048
     Dates: start: 20060101
  2. ASPIRIN [Concomitant]
     Route: 048
     Dates: start: 20010101
  3. CALCIUM SUPPLEMENT [Concomitant]

REACTIONS (6)
  - BONE PAIN [None]
  - CONFUSIONAL STATE [None]
  - DEMENTIA [None]
  - HYPOCALCAEMIA [None]
  - MUSCLE SPASMS [None]
  - MUSCULAR WEAKNESS [None]
